FAERS Safety Report 12465002 (Version 1)
Quarter: 2016Q2

REPORT INFORMATION
  Report Type: Spontaneous
  Country: KP (occurrence: KP)
  Receive Date: 20160614
  Receipt Date: 20160614
  Transmission Date: 20160815
  Serious: Yes (Hospitalization, Other)
  Sender: FDA-Public Use
  Company Number: KP-JUBILANT PHARMA LTD-2016VN000141

PATIENT
  Age: 47 Year
  Sex: Female

DRUGS (4)
  1. CALCIUM CARBONATE. [Concomitant]
     Active Substance: CALCIUM CARBONATE
     Indication: PRODUCT USED FOR UNKNOWN INDICATION
     Dosage: 500 MG, ONCE PER DAY
     Dates: start: 201503, end: 201505
  2. CALCITRIOL. [Concomitant]
     Active Substance: CALCITRIOL
     Indication: PRODUCT USED FOR UNKNOWN INDICATION
     Dosage: 0.25 ?G, ONCE PER DAY
     Dates: start: 201503, end: 201505
  3. LEVOTHYROXINE. [Concomitant]
     Active Substance: LEVOTHYROXINE
     Indication: PRODUCT USED FOR UNKNOWN INDICATION
     Dosage: 150 ?G, ONCE PER DAY
     Dates: start: 201503, end: 201505
  4. SODIUM IODIDE I-131 [Suspect]
     Active Substance: SODIUM IODIDE I-131
     Indication: THYROID CANCER
     Dosage: 100 MCI, SINGLE DOSE
     Dates: start: 201505, end: 201505

REACTIONS (9)
  - Drug-induced liver injury [Recovered/Resolved]
  - Vomiting [Recovered/Resolved]
  - Rash generalised [Recovered/Resolved]
  - Jaundice [Recovered/Resolved]
  - Nausea [Recovered/Resolved]
  - Abdominal pain [Recovered/Resolved]
  - Hepatic enzyme increased [Recovered/Resolved]
  - Hepatomegaly [Recovered/Resolved]
  - Asthenia [Recovered/Resolved]

NARRATIVE: CASE EVENT DATE: 2015
